FAERS Safety Report 8347811-8 (Version None)
Quarter: 2012Q2

REPORT INFORMATION
  Report Type: 
  Country: None (occurrence: None)
  Receive Date: 20120509
  Receipt Date: 20120501
  Transmission Date: 20120825
  Serious: Yes (Hospitalization, Congenital Anomaly)
  Sender: FDA-Public Use
  Company Number: US-GLAXOSMITHKLINE-A0976802A

PATIENT
  Sex: Female

DRUGS (2)
  1. PAXIL CR [Suspect]
     Indication: PANIC DISORDER
     Dosage: 25MG PER DAY
     Route: 064
     Dates: start: 20040227, end: 20050301
  2. PAROXETINE HCL [Suspect]
     Indication: PANIC DISORDER
     Route: 064
     Dates: start: 20050401

REACTIONS (2)
  - TALIPES [None]
  - FOETAL EXPOSURE DURING PREGNANCY [None]
